FAERS Safety Report 25199062 (Version 2)
Quarter: 2025Q2

REPORT INFORMATION
  Report Type: Spontaneous
  Country: NL (occurrence: NL)
  Receive Date: 20250415
  Receipt Date: 20250428
  Transmission Date: 20250717
  Serious: Yes (Death, Life-Threatening, Hospitalization, Other)
  Sender: ALKEM
  Company Number: None

PATIENT
  Age: 23 Year
  Sex: Male

DRUGS (2)
  1. QUETIAPINE FUMARATE [Interacting]
     Active Substance: QUETIAPINE FUMARATE
     Indication: Product used for unknown indication
     Route: 065
  2. OXYCODONE HYDROCHLORIDE [Interacting]
     Active Substance: OXYCODONE HYDROCHLORIDE
     Indication: Product used for unknown indication
     Route: 065

REACTIONS (18)
  - Acute kidney injury [Fatal]
  - Hyperkalaemia [Fatal]
  - Rhabdomyolysis [Fatal]
  - Toxic leukoencephalopathy [Fatal]
  - Shock [Fatal]
  - Coma [Fatal]
  - Cerebellar infarction [Fatal]
  - Brainstem compression [Fatal]
  - Brain herniation [Fatal]
  - Renal failure [Fatal]
  - Hepatic failure [Fatal]
  - Hypertransaminasaemia [Fatal]
  - Hyperlactacidaemia [Fatal]
  - Hypotension [Fatal]
  - Food interaction [Fatal]
  - Drug interaction [Fatal]
  - Substance abuse [Fatal]
  - Overdose [Fatal]
